FAERS Safety Report 5510443-0 (Version None)
Quarter: 2007Q4

REPORT INFORMATION
  Report Type: 
  Country: None (occurrence: None)
  Receive Date: 20071108
  Receipt Date: 20071101
  Transmission Date: 20080405
  Serious: Yes (Death)
  Sender: FDA-Public Use
  Company Number: AU-ELI_LILLY_AND_COMPANY-AU200711000294

PATIENT
  Age: 45 Year
  Sex: Female

DRUGS (3)
  1. FLUOXETINE [Suspect]
     Indication: DEPRESSION
     Dosage: 20 MG, 4/D
     Dates: start: 20020101
  2. TEMAZEPAM [Concomitant]
  3. DIAZEPAM [Concomitant]

REACTIONS (1)
  - DRUG TOXICITY [None]
